FAERS Safety Report 10466432 (Version 6)
Quarter: 2015Q1

REPORT INFORMATION
  Report Type: Spontaneous
  Country: CA (occurrence: CA)
  Receive Date: 20140922
  Receipt Date: 20150116
  Transmission Date: 20150720
  Serious: Yes (Hospitalization, Other)
  Sender: FDA-Public Use
  Company Number: CA-ROCHE-GNE322141

PATIENT
  Sex: Female

DRUGS (18)
  1. XOLAIR [Suspect]
     Active Substance: OMALIZUMAB
     Route: 058
     Dates: start: 2014
  2. PREDNISONE. [Concomitant]
     Active Substance: PREDNISONE
     Dosage: INCREASED TO 50 MG WITH SUBSEQUENT DECREASE OF 5 MG PER DAY
     Route: 065
  3. PREDNISONE. [Concomitant]
     Active Substance: PREDNISONE
     Route: 065
  4. TUDORZA PRESSAIR [Concomitant]
     Active Substance: ACLIDINIUM BROMIDE
     Indication: ASTHMA
     Route: 065
     Dates: start: 2014
  5. XOLAIR [Suspect]
     Active Substance: OMALIZUMAB
     Route: 058
     Dates: start: 20141219
  6. ADVAIR HFA [Concomitant]
     Active Substance: FLUTICASONE PROPIONATE\SALMETEROL XINAFOATE
     Indication: PRODUCT USED FOR UNKNOWN INDICATION
  7. NASONEX [Concomitant]
     Active Substance: MOMETASONE FUROATE
     Indication: PRODUCT USED FOR UNKNOWN INDICATION
  8. SYMBICORT [Concomitant]
     Active Substance: BUDESONIDE\FORMOTEROL FUMARATE DIHYDRATE
     Indication: PRODUCT USED FOR UNKNOWN INDICATION
  9. PREDNISONE. [Concomitant]
     Active Substance: PREDNISONE
     Route: 065
     Dates: end: 201305
  10. PREDNISONE. [Concomitant]
     Active Substance: PREDNISONE
     Route: 065
  11. XOLAIR [Suspect]
     Active Substance: OMALIZUMAB
     Route: 058
     Dates: start: 20130819, end: 20130819
  12. XOLAIR [Suspect]
     Active Substance: OMALIZUMAB
     Route: 058
     Dates: start: 20141103
  13. PREDNISONE. [Concomitant]
     Active Substance: PREDNISONE
     Route: 065
     Dates: start: 201301, end: 201305
  14. PREDNISONE. [Concomitant]
     Active Substance: PREDNISONE
     Route: 065
  15. DEXILANT [Concomitant]
     Active Substance: DEXLANSOPRAZOLE
  16. XOLAIR [Suspect]
     Active Substance: OMALIZUMAB
     Indication: ASTHMA
     Route: 058
     Dates: start: 20101015
  17. SINGULAIR [Concomitant]
     Active Substance: MONTELUKAST SODIUM
     Indication: PRODUCT USED FOR UNKNOWN INDICATION
  18. PREDNISONE. [Concomitant]
     Active Substance: PREDNISONE
     Route: 065

REACTIONS (28)
  - Osteoporosis [Unknown]
  - Wheezing [Recovering/Resolving]
  - Angina pectoris [Unknown]
  - Uterine polyp [Unknown]
  - Drug ineffective [Unknown]
  - Platelet count increased [Unknown]
  - White blood cell count increased [Unknown]
  - Lung disorder [Not Recovered/Not Resolved]
  - Respiratory tract infection [Unknown]
  - Asthenia [Unknown]
  - Chondropathy [Unknown]
  - Obesity [Unknown]
  - General physical health deterioration [Unknown]
  - Embolism [Unknown]
  - Cardiac disorder [Unknown]
  - Sinus disorder [Unknown]
  - Abdominal pain [Unknown]
  - Weight increased [Unknown]
  - Headache [Unknown]
  - Fatigue [Unknown]
  - Anaemia [Unknown]
  - Uterine leiomyoma [Unknown]
  - Uterine haemorrhage [Unknown]
  - Sinusitis [Unknown]
  - Dyspnoea [Unknown]
  - Heart sounds abnormal [Recovered/Resolved]
  - Productive cough [Recovering/Resolving]
  - Osteoarthritis [Unknown]
